FAERS Safety Report 19423309 (Version 2)
Quarter: 2022Q2

REPORT INFORMATION
  Report Type: Report from Study
  Country: IN (occurrence: IN)
  Receive Date: 20210616
  Receipt Date: 20220425
  Transmission Date: 20220721
  Serious: Yes (Hospitalization, Other)
  Sender: FDA-Public Use
  Company Number: IN-NOVARTISPH-NVSC2021IN127800

PATIENT
  Age: 39 Year
  Sex: Male

DRUGS (60)
  1. SIMULECT [Suspect]
     Active Substance: BASILIXIMAB
     Indication: Renal transplant
     Dosage: 20 MG (FIRST DOSE)
     Route: 065
     Dates: start: 20210410
  2. SIMULECT [Suspect]
     Active Substance: BASILIXIMAB
     Dosage: 20 MG (SECOND DOSE)
     Route: 065
     Dates: start: 20210414, end: 20210515
  3. TACROLIMUS [Suspect]
     Active Substance: TACROLIMUS
     Indication: Product used for unknown indication
     Dosage: UNK
     Route: 065
  4. BASILIXIMAB [Concomitant]
     Active Substance: BASILIXIMAB
     Indication: Product used for unknown indication
     Dosage: UNK (INDUCTION)
     Route: 065
  5. MYCOPHENOLATE MOFETIL [Concomitant]
     Active Substance: MYCOPHENOLATE MOFETIL
     Indication: Product used for unknown indication
     Dosage: UNK
     Route: 065
  6. MPS [Concomitant]
     Indication: Product used for unknown indication
     Dosage: UNK
     Route: 065
  7. PREDNISOLONE [Concomitant]
     Active Substance: PREDNISOLONE
     Indication: Product used for unknown indication
     Dosage: UNK
     Route: 065
  8. MYCOPHENOLATE SODIUM [Concomitant]
     Active Substance: MYCOPHENOLATE SODIUM
     Indication: Product used for unknown indication
     Dosage: 360 MG, BID (HALF TABLET) (8 AM AND 8 PM) (BEFORE FOOD)
     Route: 065
  9. MEROPENEM [Concomitant]
     Active Substance: MEROPENEM
     Indication: Product used for unknown indication
     Dosage: 1 G, TID (IN 100 ML NS)
     Route: 042
  10. LINEZOLID [Concomitant]
     Active Substance: LINEZOLID
     Indication: Product used for unknown indication
     Dosage: 600 MG, BID
     Route: 042
  11. SOLU-MEDROL [Concomitant]
     Active Substance: METHYLPREDNISOLONE SODIUM SUCCINATE
     Indication: Product used for unknown indication
     Dosage: 500 MG, STAT (IN 100ML NS)
     Route: 042
  12. VITAMIN K [Concomitant]
     Active Substance: PHYTONADIONE
     Indication: Product used for unknown indication
     Dosage: 1 AMP STAT
     Route: 042
  13. PANTOPRAZOLE SODIUM [Concomitant]
     Active Substance: PANTOPRAZOLE SODIUM
     Indication: Product used for unknown indication
     Dosage: 40 MG, QD
     Route: 042
  14. OPTINEURON [Concomitant]
     Indication: Product used for unknown indication
     Dosage: 1 AMP IN 100ML NS, QD
     Route: 042
  15. BUTYLSCOPOLAMINE BROMIDE [Concomitant]
     Active Substance: BUTYLSCOPOLAMINE BROMIDE
     Indication: Product used for unknown indication
     Dosage: 1AMP, BID
     Route: 042
  16. ADVACAN [Concomitant]
     Indication: Product used for unknown indication
     Dosage: 0.25 MG, BID
     Route: 048
  17. ADVACAN [Concomitant]
     Dosage: 0.5 MG, BID (TODAY FROM TOMORROW 0.5 MG AT 8:30 AM AND 0.75 MG AT 8:30 PM BEFOR FOOD TO CONTINUE)
     Route: 065
  18. ADVACAN [Concomitant]
     Dosage: 0.75 MG, BID (BEFORE FOOD 8:30 AM, 8:30 PM)
     Route: 065
  19. MYCORIL [Concomitant]
     Indication: Product used for unknown indication
     Dosage: 360 MG, TID
     Route: 048
  20. NIFEDIPINE [Concomitant]
     Active Substance: NIFEDIPINE
     Indication: Product used for unknown indication
     Dosage: 20 MG, TID (9:30 AM, 3:30 PM, 9:30 PM TO CONTINUE)
     Route: 065
  21. NIFEDIPINE [Concomitant]
     Active Substance: NIFEDIPINE
     Dosage: 20 MG, TID (7 AM, 2 PM, 7PM)
     Route: 065
  22. BISOPROLOL FUMARATE [Concomitant]
     Active Substance: BISOPROLOL FUMARATE
     Indication: Product used for unknown indication
     Dosage: 5 MG, QD
     Route: 048
  23. ESOMEPRAZOLE [Concomitant]
     Active Substance: ESOMEPRAZOLE
     Indication: Product used for unknown indication
     Dosage: 40 MG, BID (BEFORE FOOD)
     Route: 048
  24. SHELCAL CT [Concomitant]
     Indication: Product used for unknown indication
     Dosage: UNK UNK, QD
     Route: 048
  25. SHELCAL CT [Concomitant]
     Dosage: UNK UNK, QD (BEFORE FOOD TO CONTINUE)
     Route: 065
  26. QUTIPIN [Concomitant]
     Indication: Product used for unknown indication
     Dosage: 25 MG, H/S
     Route: 048
  27. LEVETIRACETAM [Concomitant]
     Active Substance: LEVETIRACETAM
     Indication: Product used for unknown indication
     Dosage: 5 MG, BID
     Route: 048
  28. LEVETIRACETAM [Concomitant]
     Active Substance: LEVETIRACETAM
     Dosage: 500 MG, BID (TO CONTINUE)
     Route: 065
  29. ARKAMIN [Concomitant]
     Indication: Product used for unknown indication
     Dosage: 0.1 MG, BID
     Route: 048
  30. ARKAMIN [Concomitant]
     Dosage: 0.1 MG, TID (6 AM, 2 PM, 10 PM TO CONTINUE)
     Route: 065
  31. ARKAMIN [Concomitant]
     Dosage: 0.1 MG, TID (6AM, 3PM, 9PM)
     Route: 065
  32. PREDNISOLONE [Concomitant]
     Active Substance: PREDNISOLONE
     Indication: Product used for unknown indication
     Dosage: 10 MG, QD (AFTER FOOD)
     Route: 048
  33. PREDNISOLONE [Concomitant]
     Active Substance: PREDNISOLONE
     Dosage: 20 MG, QD (AFTER FOOD TO CONTINUE)
     Route: 065
  34. PREDNISOLONE [Concomitant]
     Active Substance: PREDNISOLONE
     Dosage: 12.5 MG, QD (AFTER FOOD 10 AM)
     Route: 065
  35. NIFTAS [Concomitant]
     Indication: Product used for unknown indication
     Dosage: 100 MG, BID
     Route: 048
  36. MINIPRESS [Concomitant]
     Active Substance: PRAZOSIN HYDROCHLORIDE
     Indication: Product used for unknown indication
     Dosage: UNK UNK, BID
     Route: 048
  37. FARONEM [Concomitant]
     Indication: Product used for unknown indication
     Dosage: 200 MG, BID
     Route: 048
  38. FARONEM [Concomitant]
     Dosage: 200 MG, BID (FOR 5 DAYS)
     Route: 065
  39. LIZOLID [Concomitant]
     Indication: Product used for unknown indication
     Dosage: 600 MG, BID
     Route: 048
  40. TACROLIMUS [Concomitant]
     Active Substance: TACROLIMUS
     Indication: Product used for unknown indication
     Dosage: 0.5 MG, QD (BEFORE FOOD) (AND THEN 1 MG ORAL H/S)
     Route: 048
  41. DUPHALAC [Concomitant]
     Active Substance: LACTULOSE
     Indication: Product used for unknown indication
     Dosage: 20 ML, H/S
     Route: 048
  42. NICARDIA XL [Concomitant]
     Indication: Product used for unknown indication
     Dosage: 30 MG, TID
     Route: 048
  43. CYMGAL [Concomitant]
     Indication: Product used for unknown indication
     Dosage: 450 MG, QD
     Route: 048
  44. SUCRAL [Concomitant]
     Indication: Product used for unknown indication
     Dosage: 10 ML, TID
     Route: 048
  45. MYCOPHENOLIC ACID [Concomitant]
     Active Substance: MYCOPHENOLIC ACID
     Indication: Product used for unknown indication
     Dosage: 360 MG, BID (1 1/2 TABLET 8AM AND 8PM BEFORE FOOD TO CONTINUE)
     Route: 065
  46. PANTOPRAZOLE SODIUM [Concomitant]
     Active Substance: PANTOPRAZOLE SODIUM
     Indication: Product used for unknown indication
     Dosage: 40 MG, QD (BEFORE FOOD TO CONTINUE)
     Route: 065
  47. ALDACTONE [Concomitant]
     Active Substance: SPIRONOLACTONE
     Indication: Product used for unknown indication
     Dosage: 25 MG, QD (9:30 AM TO CONTINUE)
     Route: 065
  48. NEXITO PLUS [Concomitant]
     Indication: Product used for unknown indication
     Dosage: UNK UNK, QD (TO CONTINUE)
     Route: 065
  49. PROBIOTICS NOS [Concomitant]
     Active Substance: PROBIOTICS NOS
     Indication: Product used for unknown indication
     Dosage: UNK UNK, BID (FOR 5 DAYS)
     Route: 065
  50. METHYLPREDNISOLONE [Concomitant]
     Active Substance: METHYLPREDNISOLONE
     Indication: Product used for unknown indication
     Dosage: 1 G (PULSE)
     Route: 042
  51. METHYLPREDNISOLONE [Concomitant]
     Active Substance: METHYLPREDNISOLONE
     Dosage: 3 PULSES (STRENGTH: 500 MG)
     Route: 042
  52. THYMOGLOBULINE [Concomitant]
     Active Substance: LAPINE T-LYMPHOCYTE IMMUNE GLOBULIN
     Indication: Product used for unknown indication
     Dosage: 3 MG/KG
     Route: 065
     Dates: start: 20210528
  53. THYMOGLOBULINE [Concomitant]
     Active Substance: LAPINE T-LYMPHOCYTE IMMUNE GLOBULIN
     Dosage: 3 MG/KG
     Route: 065
     Dates: start: 20210530
  54. THYMOGLOBULINE [Concomitant]
     Active Substance: LAPINE T-LYMPHOCYTE IMMUNE GLOBULIN
     Dosage: 3 MG/KG (175 MG)
     Route: 065
     Dates: start: 20210604
  55. LAPINE T-LYMPHOCYTE IMMUNE GLOBULIN [Concomitant]
     Active Substance: LAPINE T-LYMPHOCYTE IMMUNE GLOBULIN
     Indication: Product used for unknown indication
     Dosage: 1 MG/KG (IN 2 DIVIDED DOSES)
     Route: 065
  56. IMICELUM [Concomitant]
     Indication: Product used for unknown indication
     Dosage: 500 MG, BID (250 PLUS 250 MG IN 100 ML NS OVER 1 HOUR)
     Route: 042
  57. ZOLPIDEM TARTRATE [Concomitant]
     Active Substance: ZOLPIDEM TARTRATE
     Indication: Product used for unknown indication
     Dosage: 10 MG, QD
     Route: 065
  58. PANTOCID [Concomitant]
     Indication: Product used for unknown indication
     Dosage: 40 MG, QD (BEFORE FOOD)
     Route: 065
  59. DOLO [Concomitant]
     Indication: Product used for unknown indication
     Dosage: 650 (UNSPECIFIED UNITS), PRN
     Route: 065
  60. SUCRAL ANO [Concomitant]
     Indication: Product used for unknown indication
     Dosage: UNK, BID (FOR LOCAL APPLICATION)
     Route: 065

REACTIONS (16)
  - Kidney transplant rejection [Unknown]
  - Transplant dysfunction [Unknown]
  - Blood creatinine increased [Unknown]
  - Acute pulmonary oedema [Recovering/Resolving]
  - Hypertensive encephalopathy [Recovering/Resolving]
  - Pyelonephritis [Unknown]
  - Renal-limited thrombotic microangiopathy [Unknown]
  - Toxicity to various agents [Unknown]
  - Metabolic acidosis [Unknown]
  - Haemoglobin decreased [Unknown]
  - Platelet count decreased [Unknown]
  - Staphylococcal infection [Unknown]
  - Klebsiella infection [Unknown]
  - Urinary tract infection [Unknown]
  - Dyspnoea [Unknown]
  - Hypertension [Unknown]

NARRATIVE: CASE EVENT DATE: 20210401
